FAERS Safety Report 5559517-9 (Version None)
Quarter: 2007Q4

REPORT INFORMATION
  Report Type: 
  Country: None (occurrence: None)
  Receive Date: 20071214
  Receipt Date: 20070928
  Transmission Date: 20080405
  Serious: No
  Sender: FDA-Public Use
  Company Number: US-ABBOTT-07P-163-0419536-00

PATIENT
  Sex: Female
  Weight: 59.02 kg

DRUGS (6)
  1. HUMIRA [Suspect]
     Indication: CROHN'S DISEASE
     Route: 058
     Dates: start: 20070817, end: 20070831
  2. HUMIRA [Suspect]
     Route: 058
     Dates: start: 20070831, end: 20070914
  3. HUMIRA [Suspect]
     Dosage: LOT #/EXP NOT AVAILABLE-PATIENT NOT HOME
     Route: 058
     Dates: start: 20070914
  4. MERCAPTOPURINE [Concomitant]
     Indication: CROHN'S DISEASE
     Route: 048
  5. MESALAMINE [Concomitant]
     Indication: CROHN'S DISEASE
     Route: 048
  6. DOFAMIUM CHLORIDE [Concomitant]
     Indication: CONTRACEPTION
     Route: 048

REACTIONS (1)
  - ACCIDENTAL EXPOSURE [None]
